FAERS Safety Report 4535371-9 (Version None)
Quarter: 2004Q4

REPORT INFORMATION
  Report Type: 
  Country: None (occurrence: None)
  Receive Date: 20041222
  Receipt Date: 20030318
  Transmission Date: 20050328
  Serious: Yes (Hospitalization)
  Sender: FDA-Public Use
  Company Number: JP-ABBOTT-03P-087-0214396-00

PATIENT
  Sex: Male

DRUGS (22)
  1. NORVIR [Suspect]
     Indication: HIV INFECTION
     Route: 048
     Dates: start: 19990727, end: 19990727
  2. NORVIR [Suspect]
     Route: 048
     Dates: start: 19990728, end: 19990728
  3. NORVIR [Suspect]
     Route: 048
     Dates: start: 19990729, end: 19990729
  4. NORVIR [Suspect]
     Route: 048
     Dates: start: 19990730, end: 19991003
  5. NORVIR [Suspect]
     Route: 048
     Dates: start: 19991015, end: 19991103
  6. NORVIR [Suspect]
     Route: 048
     Dates: start: 19991127, end: 20001020
  7. NORVIR [Suspect]
     Route: 048
     Dates: start: 20001213, end: 20010605
  8. NORVIR [Suspect]
     Route: 048
     Dates: start: 20010702, end: 20021020
  9. NORVIR [Suspect]
     Indication: HIV INFECTION
     Route: 048
     Dates: start: 19991004, end: 19991014
  10. KALETRA [Suspect]
     Indication: HIV INFECTION
     Route: 048
     Dates: start: 20010606, end: 20010617
  11. SANILVUDINE [Suspect]
     Indication: HIV INFECTION
     Route: 048
     Dates: start: 19991112, end: 20001005
  12. LAMIVUDINE [Suspect]
     Indication: HIV INFECTION
     Route: 048
     Dates: start: 19991112, end: 20001012
  13. SAQUINAVIR [Suspect]
     Indication: HIV INFECTION
     Route: 048
     Dates: start: 19990731, end: 19991103
  14. SAQUINAVIR [Suspect]
     Route: 048
     Dates: start: 19991127, end: 20001020
  15. SAQUINAVIR [Suspect]
     Route: 048
     Dates: start: 20001213, end: 20010605
  16. SAQUINAVIR [Suspect]
     Route: 048
     Dates: start: 20010702, end: 20021020
  17. EFAVIRENZ [Suspect]
     Indication: HIV INFECTION
     Route: 048
     Dates: start: 20001013, end: 20001020
  18. EFAVIRENZ [Suspect]
     Route: 048
     Dates: start: 20001213, end: 20010617
  19. EFAVIRENZ [Suspect]
     Route: 048
     Dates: start: 20010702
  20. ZIDOVUDINE [Concomitant]
     Indication: HIV INFECTION
     Route: 048
     Dates: start: 20001206
  21. NELFINAVIR [Concomitant]
     Indication: HIV INFECTION
     Route: 048
     Dates: start: 20021021
  22. TENOFOVIR [Concomitant]
     Indication: HIV INFECTION
     Route: 048
     Dates: start: 20021021

REACTIONS (9)
  - BLOOD ALKALINE PHOSPHATASE INCREASED [None]
  - BLOOD AMYLASE INCREASED [None]
  - BLOOD URIC ACID INCREASED [None]
  - BRADYCARDIA [None]
  - GAMMA-GLUTAMYLTRANSFERASE INCREASED [None]
  - HYPERLACTACIDAEMIA [None]
  - HYPERLIPIDAEMIA [None]
  - RASH [None]
  - RENAL IMPAIRMENT [None]
